FAERS Safety Report 7371264-X (Version None)
Quarter: 2011Q1

REPORT INFORMATION
  Report Type: 
  Country: None (occurrence: None)
  Receive Date: 20110322
  Receipt Date: 20110322
  Transmission Date: 20110831
  Serious: Yes (Other)
  Sender: FDA-Public Use
  Company Number: None

PATIENT
  Age: 1 Day
  Sex: Male
  Weight: 3.7 kg

DRUGS (3)
  1. ERYTHROMYCIN [Suspect]
     Indication: OPHTHALMIA NEONATORUM
     Dosage: SMALL RIBBON ONCE OPHTHALMIC  1 DOSE TO EACH EYE
     Route: 047
     Dates: start: 20110316, end: 20110316
  2. ERYTHROMYCIN [Suspect]
     Indication: PROPHYLAXIS
     Dosage: SMALL RIBBON ONCE OPHTHALMIC  1 DOSE TO EACH EYE
     Route: 047
     Dates: start: 20110316, end: 20110316
  3. ERYTHROMYCIN [Suspect]

REACTIONS (4)
  - EYELID OEDEMA [None]
  - PERIORBITAL OEDEMA [None]
  - ERYTHEMA [None]
  - ERYTHEMA OF EYELID [None]
